FAERS Safety Report 4747508-7 (Version None)
Quarter: 2005Q3

REPORT INFORMATION
  Report Type: 
  Country: None (occurrence: None)
  Receive Date: 20050818
  Receipt Date: 20050510
  Transmission Date: 20060218
  Serious: Yes (Hospitalization)
  Sender: FDA-Public Use
  Company Number: FR-BRISTOL-MYERS SQUIBB COMPANY-12974200

PATIENT
  Age: 1 Day
  Sex: Female
  Weight: 3 kg

DRUGS (7)
  1. REYATAZ [Suspect]
     Indication: HIV INFECTION
     Route: 064
     Dates: start: 20040801, end: 20050324
  2. VIDEX EC [Suspect]
     Indication: HIV INFECTION
     Route: 064
     Dates: start: 20040801, end: 20050324
  3. NORVIR [Suspect]
     Indication: HIV INFECTION
     Route: 064
     Dates: start: 20040801, end: 20050324
  4. EPIVIR [Suspect]
     Indication: HIV INFECTION
     Route: 064
     Dates: start: 20041028, end: 20050324
  5. VIREAD [Suspect]
     Indication: HIV INFECTION
     Route: 064
     Dates: start: 20040801, end: 20041028
  6. RETROVIR [Suspect]
     Indication: PROPHYLAXIS
     Dosage: 3/28/05 1.5 MG/KGX4/D 48H,1.5MG/KGX2/D DILUTEG5% 4/4/05D/C'D FOR48H,1.5MG/KGX2/D 3-4 WKS,0.7MG/KG/8H
     Route: 048
     Dates: start: 20050328
  7. RETROVIR [Suspect]
     Dosage: STARTED AT 36 H OF LIFE FOR 48 H THEN STOPPED. RESTARTED 4/4/05 SAME DOSE UNTIL DAY 15 OF LIFE.
     Route: 042
     Dates: start: 20050301, end: 20050101

REACTIONS (3)
  - ENTEROCOLITIS HAEMORRHAGIC [None]
  - HYPOGLYCAEMIA [None]
  - JAUNDICE NEONATAL [None]
